FAERS Safety Report 5584554-8 (Version None)
Quarter: 2008Q1

REPORT INFORMATION
  Report Type: 
  Country: None (occurrence: None)
  Receive Date: 20080103
  Receipt Date: 20071219
  Transmission Date: 20080703
  Serious: Yes (Hospitalization)
  Sender: FDA-Public Use
  Company Number: GXKR2007GB10890

PATIENT
  Age: 42 Year
  Sex: Male
  Weight: 70 kg

DRUGS (1)
  1. ACETAMINOPHEN [Suspect]
     Dosage: 1 G X 6, INTRAVENOUS
     Route: 042

REACTIONS (4)
  - ACUTE HEPATIC FAILURE [None]
  - ANALGESIC DRUG LEVEL INCREASED [None]
  - ENCEPHALOPATHY [None]
  - PROTHROMBIN TIME PROLONGED [None]
